FAERS Safety Report 4877561-1 (Version None)
Quarter: 2006Q1

REPORT INFORMATION
  Report Type: 
  Country: None (occurrence: None)
  Receive Date: 20060111
  Receipt Date: 20060105
  Transmission Date: 20060701
  Serious: Yes (Other)
  Sender: FDA-Public Use
  Company Number: US-GLAXOSMITHKLINE-A0588412A

PATIENT
  Sex: Male
  Weight: 2.9 kg

DRUGS (1)
  1. ZIDOVUDINE [Suspect]
     Indication: HIV INFECTION
     Dosage: 2MGKD SINGLE DOSE
     Dates: start: 20050812, end: 20050812

REACTIONS (2)
  - DRUG EXPOSURE DURING PREGNANCY [None]
  - SPINE MALFORMATION [None]
